FAERS Safety Report 8811952 (Version 2)
Quarter: 2012Q4

REPORT INFORMATION
  Report Type: Report from Study
  Country: SG (occurrence: SG)
  Receive Date: 20120927
  Receipt Date: 20121017
  Transmission Date: 20130627
  Serious: Yes (Other)
  Sender: FDA-Public Use
  Company Number: SG-EISAI INC-E7389-03038-CLI-SG

PATIENT
  Age: 47 Year
  Sex: Male
  Weight: 86 kg

DRUGS (7)
  1. E7389 (BOLD) [Suspect]
     Indication: NON-SMALL CELL LUNG CANCER
     Route: 041
     Dates: start: 20120912, end: 20120919
  2. E7389 (BOLD) [Suspect]
     Route: 041
     Dates: start: 20120823, end: 20120830
  3. CELECOXIB [Concomitant]
     Indication: CHEST PAIN
     Route: 048
     Dates: start: 20120531
  4. LEVOTHYROXINE SODIUM [Concomitant]
     Indication: HYPOTHYROIDISM
     Route: 048
     Dates: start: 2005
  5. OMEPRAZOLE [Concomitant]
     Indication: PROPHYLAXIS
     Route: 048
     Dates: start: 20120531
  6. PARACETAMOL [Concomitant]
     Indication: CHEST PAIN
     Route: 048
     Dates: start: 201202
  7. RHINATHIOL PROMETHAZINE [Concomitant]
     Indication: COUGH
     Route: 048
     Dates: start: 20120918

REACTIONS (1)
  - Pneumonitis [Recovered/Resolved]
